FAERS Safety Report 7409851-2 (Version None)
Quarter: 2011Q2

REPORT INFORMATION
  Report Type: 
  Country: None (occurrence: None)
  Receive Date: 20110405
  Receipt Date: 20110324
  Transmission Date: 20111010
  Serious: No
  Sender: FDA-Public Use
  Company Number: 2011AM003873

PATIENT
  Sex: Female
  Weight: 150.1406 kg

DRUGS (17)
  1. LAXATIVES [Concomitant]
  2. HUMULIN R [Concomitant]
  3. SYNTHROID [Concomitant]
  4. CYTOMEL [Concomitant]
  5. PREVACID [Concomitant]
  6. DICLOFENAC SODIUM [Concomitant]
  7. BUMEX [Concomitant]
  8. ERGOCALCIFEROL [Concomitant]
  9. PRAVASTATIN [Concomitant]
  10. ZOFRAN [Concomitant]
  11. VALSARTAN [Concomitant]
  12. ALDACTONE [Concomitant]
  13. VITAMIN B-12 [Concomitant]
  14. SYMLIN [Suspect]
     Indication: TYPE 1 DIABETES MELLITUS
     Dosage: 60 MCG;TID;SC ; 120 MCG;TID;SC ; 60 MCG;TID;SC ; 45 MCG;TID;SC ; 30 MCG;TID;SC ; 15 MCG;TID;SC
     Route: 058
     Dates: end: 20110214
  15. SYMLIN [Suspect]
     Indication: TYPE 1 DIABETES MELLITUS
     Dosage: 60 MCG;TID;SC ; 120 MCG;TID;SC ; 60 MCG;TID;SC ; 45 MCG;TID;SC ; 30 MCG;TID;SC ; 15 MCG;TID;SC
     Route: 058
     Dates: start: 20100801
  16. SYMLIN [Suspect]
     Indication: TYPE 1 DIABETES MELLITUS
     Dosage: 60 MCG;TID;SC ; 120 MCG;TID;SC ; 60 MCG;TID;SC ; 45 MCG;TID;SC ; 30 MCG;TID;SC ; 15 MCG;TID;SC
     Route: 058
     Dates: start: 20110221
  17. SKELAXIN [Concomitant]

REACTIONS (5)
  - ABDOMINAL PAIN [None]
  - HEPATOMEGALY [None]
  - VOMITING [None]
  - HEPATIC STEATOSIS [None]
  - NAUSEA [None]
